FAERS Safety Report 14343105 (Version 1)
Quarter: 2017Q4

REPORT INFORMATION
  Report Type: Spontaneous
  Country: US (occurrence: US)
  Receive Date: 20171231
  Receipt Date: 20171231
  Transmission Date: 20180321
  Serious: Yes (Disabling)
  Sender: FDA-Public Use
  Company Number: None

PATIENT
  Age: 31 Year
  Sex: Female
  Weight: 84.6 kg

DRUGS (1)
  1. EPCLUSA [Suspect]
     Active Substance: SOFOSBUVIR\VELPATASVIR
     Indication: HEPATITIS C
     Dosage: ?          QUANTITY:84 TABLET(S);?
     Route: 048

REACTIONS (3)
  - Visual impairment [None]
  - Hypoacusis [None]
  - Ear disorder [None]

NARRATIVE: CASE EVENT DATE: 20170208
